FAERS Safety Report 5093416-4 (Version None)
Quarter: 2006Q3

REPORT INFORMATION
  Report Type: 
  Country: None (occurrence: None)
  Receive Date: 20060829
  Receipt Date: 20060822
  Transmission Date: 20061208
  Serious: Yes (Hospitalization)
  Sender: FDA-Public Use
  Company Number: 2006-146956-NL

PATIENT
  Age: 78 Year
  Sex: Female

DRUGS (3)
  1. DANAPAROID SODIUM [Suspect]
     Indication: PHLEBITIS DEEP
     Dosage: 3000 ANTI_XA SUBCUTANEOUS
     Route: 058
     Dates: start: 20060106, end: 20060111
  2. DANAPAROID SODIUM [Suspect]
     Indication: THROMBOPHLEBITIS
     Dosage: 3000 ANTI_XA SUBCUTANEOUS
     Route: 058
     Dates: start: 20060106, end: 20060111
  3. PHENOBARBITAL TAB [Concomitant]

REACTIONS (2)
  - DISEASE PROGRESSION [None]
  - HEPARIN-INDUCED THROMBOCYTOPENIA [None]
